FAERS Safety Report 19821094 (Version 1)
Quarter: 2021Q3

REPORT INFORMATION
  Report Type: Other
  Country: GB (occurrence: GB)
  Receive Date: 20210913
  Receipt Date: 20210913
  Transmission Date: 20211014
  Serious: Yes (Other)
  Sender: FDA-Public Use
  Company Number: GB-APOTEX-2021AP042484

PATIENT
  Sex: Female

DRUGS (1)
  1. SEROXAT [Suspect]
     Active Substance: PAROXETINE HYDROCHLORIDE
     Indication: ILL-DEFINED DISORDER
     Dosage: UNK
     Route: 048
     Dates: start: 199810, end: 200303

REACTIONS (13)
  - Dizziness [Unknown]
  - Mood altered [Unknown]
  - Suicidal ideation [Unknown]
  - Irritability [Unknown]
  - Paranoia [Unknown]
  - Paraesthesia [Unknown]
  - Insomnia [Unknown]
  - Anxiety [Unknown]
  - Vision blurred [Unknown]
  - Asthenia [Unknown]
  - Electric shock sensation [Unknown]
  - Palpitations [Unknown]
  - Disturbance in attention [Unknown]

NARRATIVE: CASE EVENT DATE: 199810
